FAERS Safety Report 7241102-4 (Version None)
Quarter: 2011Q1

REPORT INFORMATION
  Report Type: 
  Country: None (occurrence: None)
  Receive Date: 20110120
  Receipt Date: 20110120
  Transmission Date: 20110831
  Serious: Yes (Other)
  Sender: FDA-Public Use
  Company Number: None

PATIENT
  Age: 37 Year
  Sex: Female
  Weight: 48.9885 kg

DRUGS (1)
  1. TRANSDERM SCOP [Suspect]
     Indication: MOTION SICKNESS
     Dosage: 1.5MG Q3 DAYS TRANSDERMAL
     Route: 062
     Dates: start: 20110109, end: 20110115

REACTIONS (10)
  - SOMNOLENCE [None]
  - DYSSTASIA [None]
  - NAUSEA [None]
  - IMPAIRED DRIVING ABILITY [None]
  - HEADACHE [None]
  - FEELING ABNORMAL [None]
  - MALAISE [None]
  - VERTIGO [None]
  - IMPAIRED WORK ABILITY [None]
  - ABASIA [None]
